FAERS Safety Report 6237591-4 (Version None)
Quarter: 2009Q2

REPORT INFORMATION
  Report Type: 
  Country: None (occurrence: None)
  Receive Date: 20090617
  Receipt Date: 20090604
  Transmission Date: 20091009
  Serious: Yes (Other)
  Sender: FDA-Public Use
  Company Number: DSU-2009-01184

PATIENT
  Age: 81 Year
  Sex: Female

DRUGS (5)
  1. BENICAR [Suspect]
     Indication: HYPERTENSION
     Dosage: 20 MG (20 MG, QD) PER ORAL
     Route: 048
     Dates: start: 20090105
  2. ALBUTEROL (SALBUTAMOL) (SALBUTAMOL) [Concomitant]
  3. PAXIL (PAROXETINE HYDROCHLORIDE) (TABLET) (PAROXETINE HYDROCHLORIDE) [Concomitant]
  4. FUROSEMIDE (FUROSEMIDE) (TABLET) (FUROSEMIDE) [Concomitant]
  5. ADVAIR (FLUTICASONE PROPIONATE, SALMETEROL XINAFOATE) (FLUTICASONE PRO [Concomitant]

REACTIONS (1)
  - HYPONATRAEMIA [None]
